FAERS Safety Report 4958599-2 (Version None)
Quarter: 2006Q1

REPORT INFORMATION
  Report Type: 
  Country: None (occurrence: None)
  Receive Date: 20060127
  Receipt Date: 20050112
  Transmission Date: 20060701
  Serious: Yes (Hospitalization)
  Sender: FDA-Public Use
  Company Number: 05-01-0075

PATIENT
  Age: 44 Year
  Sex: Female

DRUGS (4)
  1. CLOZAPINE [Suspect]
     Indication: SCHIZOPHRENIA
     Dosage: 450MG QD, ORAL
     Route: 048
     Dates: start: 20000801
  2. IMIPRAMINE [Concomitant]
  3. COGENTIN [Concomitant]
  4. ATIVAN [Concomitant]

REACTIONS (2)
  - DRUG INEFFECTIVE [None]
  - DYSMENORRHOEA [None]
